FAERS Safety Report 17129350 (Version 1)
Quarter: 2019Q4

REPORT INFORMATION
  Report Type: Report from Study
  Country: TR (occurrence: TR)
  Receive Date: 20191209
  Receipt Date: 20191209
  Transmission Date: 20200122
  Serious: Yes (Other)
  Sender: FDA-Public Use
  Company Number: TR-PFIZER INC-2019529028

PATIENT
  Age: 34 Year
  Sex: Female

DRUGS (1)
  1. CABERGOLINE. [Suspect]
     Active Substance: CABERGOLINE
     Indication: PROLACTIN-PRODUCING PITUITARY TUMOUR
     Dosage: 1 MG, WEEKLY (CAB 1 MG/WK 5 WKS)

REACTIONS (1)
  - Stillbirth [Unknown]
